FAERS Safety Report 6506389-1 (Version None)
Quarter: 2009Q4

REPORT INFORMATION
  Report Type: 
  Country: None (occurrence: None)
  Receive Date: 20091218
  Receipt Date: 20091210
  Transmission Date: 20100525
  Serious: Yes (Disabling, Other)
  Sender: FDA-Public Use
  Company Number: US-MERCK-0808USA04224

PATIENT
  Age: 66 Year
  Sex: Female
  Weight: 56 kg

DRUGS (2)
  1. FOSAMAX [Suspect]
     Indication: OSTEOPOROSIS
     Route: 048
     Dates: start: 19960603, end: 19990705
  2. FOSAMAX [Suspect]
     Route: 048
     Dates: start: 20000920, end: 20060501

REACTIONS (26)
  - ABSCESS [None]
  - ARTHRALGIA [None]
  - BRONCHITIS [None]
  - CATARACT [None]
  - CHEST PAIN [None]
  - COUGH [None]
  - DENTAL CARIES [None]
  - DEPRESSION [None]
  - DERMATITIS [None]
  - DIVERTICULITIS [None]
  - DRUG HYPERSENSITIVITY [None]
  - EXOSTOSIS [None]
  - GASTROOESOPHAGEAL REFLUX DISEASE [None]
  - GINGIVAL DISORDER [None]
  - HYPOAESTHESIA [None]
  - IMPAIRED HEALING [None]
  - JAW DISORDER [None]
  - ORAL HERPES [None]
  - ORAL INFECTION [None]
  - OSTEONECROSIS [None]
  - PAIN [None]
  - RHINORRHOEA [None]
  - SOFT TISSUE NECROSIS [None]
  - SPINAL COMPRESSION FRACTURE [None]
  - TEMPOROMANDIBULAR JOINT SYNDROME [None]
  - TOOTH FRACTURE [None]
